FAERS Safety Report 5805886-1 (Version None)
Quarter: 2008Q3

REPORT INFORMATION
  Report Type: 
  Country: None (occurrence: None)
  Receive Date: 20080709
  Receipt Date: 20080709
  Transmission Date: 20090109
  Serious: Yes (Life-Threatening)
  Sender: FDA-Public Use
  Company Number: None

PATIENT
  Age: 59 Year
  Sex: Male
  Weight: 78 kg

DRUGS (1)
  1. DIAZEPAM [Suspect]
     Dosage: 5 MG TID PO
     Route: 048
     Dates: start: 19990819, end: 20080521

REACTIONS (5)
  - ASTHENIA [None]
  - CONFUSIONAL STATE [None]
  - FATIGUE [None]
  - PNEUMONIA [None]
  - UNRESPONSIVE TO STIMULI [None]
